FAERS Safety Report 5016807-6 (Version None)
Quarter: 2006Q2

REPORT INFORMATION
  Report Type: 
  Country: None (occurrence: None)
  Receive Date: 20060602
  Receipt Date: 20051130
  Transmission Date: 20061013
  Serious: No
  Sender: FDA-Public Use
  Company Number: 8013439

PATIENT
  Age: 23 Year
  Sex: Male

DRUGS (2)
  1. AUGMENTIN '125' [Suspect]
     Dosage: 875MG TWICE PER DAY
     Route: 048
     Dates: start: 20051104
  2. KEPPRA [Suspect]
     Dosage: 250MG TWICE PER DAY
     Route: 048
     Dates: start: 20051102

REACTIONS (1)
  - DYSGEUSIA [None]
